FAERS Safety Report 9439764 (Version 1)
Quarter: 2013Q3

REPORT INFORMATION
  Report Type: Spontaneous
  Country: US (occurrence: None)
  Receive Date: 20130802
  Receipt Date: 20130802
  Transmission Date: 20140515
  Serious: Yes (Hospitalization, Other)
  Sender: FDA-Public Use
  Company Number: None

PATIENT
  Age: 36 Year
  Sex: Female

DRUGS (9)
  1. RISPERIDONE [Suspect]
     Route: 048
     Dates: start: 20080327, end: 20130606
  2. ABILIFY [Concomitant]
  3. G.E POLYETHYLENE [Concomitant]
  4. G.E LORATADINE [Concomitant]
  5. G.E OMEPRAZOLE [Concomitant]
  6. KLOR-CONM [Concomitant]
  7. NAPROXEN [Concomitant]
  8. TRIAMTERENE-HCTX [Concomitant]
  9. PRENOPLUS [Concomitant]

REACTIONS (8)
  - Feeling abnormal [None]
  - Somnolence [None]
  - Chest pain [None]
  - Headache [None]
  - Paraesthesia [None]
  - Pollakiuria [None]
  - Syncope [None]
  - Ankle fracture [None]
